FAERS Safety Report 7541394-8 (Version None)
Quarter: 2011Q2

REPORT INFORMATION
  Report Type: 
  Country: None (occurrence: None)
  Receive Date: 20110613
  Receipt Date: 20110606
  Transmission Date: 20111010
  Serious: No
  Sender: FDA-Public Use
  Company Number: US-BIOGENIDEC-2010BI018944

PATIENT
  Sex: Male

DRUGS (2)
  1. TYSABRI [Suspect]
     Indication: MULTIPLE SCLEROSIS
     Route: 042
     Dates: start: 20061003, end: 20070222
  2. TYSABRI [Suspect]
     Route: 042
     Dates: start: 20070416, end: 20101209

REACTIONS (7)
  - BACK DISORDER [None]
  - PERONEAL NERVE PALSY [None]
  - STRESS [None]
  - ASTHENIA [None]
  - GAIT DISTURBANCE [None]
  - COGNITIVE DISORDER [None]
  - INTERVERTEBRAL DISC DEGENERATION [None]
